FAERS Safety Report 6700713-2 (Version None)
Quarter: 2010Q2

REPORT INFORMATION
  Report Type: 
  Country: None (occurrence: None)
  Receive Date: 20100428
  Receipt Date: 20100419
  Transmission Date: 20101027
  Serious: Yes (Hospitalization)
  Sender: FDA-Public Use
  Company Number: US-MERCK-1004USA03940

PATIENT
  Age: 57 Year
  Sex: Female

DRUGS (2)
  1. ISENTRESS [Suspect]
     Indication: HIV INFECTION
     Route: 048
     Dates: start: 20100101, end: 20100101
  2. TRUVADA [Concomitant]
     Route: 065

REACTIONS (3)
  - EOSINOPHILIA [None]
  - NAUSEA [None]
  - VOMITING [None]
